FAERS Safety Report 9817545 (Version 1)
Quarter: 2014Q1

REPORT INFORMATION
  Report Type: Report from Study
  Country: US (occurrence: US)
  Receive Date: 20140115
  Receipt Date: 20140115
  Transmission Date: 20141002
  Serious: Yes (Other)
  Sender: FDA-Public Use
  Company Number: US-ROCHE-1330949

PATIENT
  Age: 52 Year
  Sex: Female
  Weight: 125 kg

DRUGS (18)
  1. XOLAIR [Suspect]
     Indication: ASTHMA
     Route: 058
  2. XOLAIR [Suspect]
     Indication: RHINITIS ALLERGIC
     Dosage: START DATE: 06/AUG/2013
     Route: 058
  3. ASPIRIN [Concomitant]
     Route: 065
  4. BENZTROPINE [Concomitant]
     Route: 048
  5. CETIRIZINE [Concomitant]
     Route: 048
  6. NOVOLOG [Concomitant]
     Dosage: 34 UNTS BEFORE BREAK/LUNCH 44 BEFORE DINNER
     Route: 058
  7. LISINOPRIL [Concomitant]
     Route: 048
  8. GABAPENTIN [Concomitant]
     Route: 048
  9. FLUTICASONE [Concomitant]
     Route: 045
  10. ESCITALOPRAM [Concomitant]
     Route: 048
  11. FLUPHENAZINE [Concomitant]
     Dosage: 1 IN AM AND 2 AT NIGHT
     Route: 048
  12. OMEPRAZOLE [Concomitant]
     Route: 048
  13. OXYBUTYNIN [Concomitant]
     Route: 048
  14. ADVAIR HFA [Concomitant]
     Dosage: 1 PUFF TWICE DAILY
     Route: 065
  15. QVAR [Concomitant]
     Dosage: 2 PUFFS TWICE DAILY
     Route: 065
  16. ZYFLO [Concomitant]
     Route: 065
  17. NASONEX [Concomitant]
  18. BUDESONIDE [Concomitant]

REACTIONS (18)
  - Blood glucose increased [Unknown]
  - Asthma [Unknown]
  - Nodule [Unknown]
  - Forced expiratory volume decreased [Unknown]
  - Mucosal discolouration [Unknown]
  - Haemoglobin increased [Unknown]
  - Mean cell haemoglobin concentration decreased [Unknown]
  - High density lipoprotein decreased [Unknown]
  - Anion gap decreased [Unknown]
  - Red blood cell count increased [Unknown]
  - Haematocrit decreased [Unknown]
  - Mean cell volume decreased [Unknown]
  - Red cell distribution width increased [Unknown]
  - White blood cell count increased [Unknown]
  - Neutrophil count increased [Unknown]
  - Lymphocyte count decreased [Unknown]
  - Glycosylated haemoglobin increased [Unknown]
  - Mean cell haemoglobin decreased [Unknown]
